FAERS Safety Report 7149261-9 (Version None)
Quarter: 2010Q4

REPORT INFORMATION
  Report Type: 
  Country: None (occurrence: None)
  Receive Date: 20101209
  Receipt Date: 20101129
  Transmission Date: 20110411
  Serious: Yes (Hospitalization)
  Sender: FDA-Public Use
  Company Number: US-ELI_LILLY_AND_COMPANY-US201011007488

PATIENT
  Sex: Male

DRUGS (22)
  1. GEMCITABINE HCL [Suspect]
     Indication: ADENOCARCINOMA PANCREAS
     Dosage: 2180 MG, UNKNOWN
     Route: 065
     Dates: start: 20101029
  2. PACLITAXEL [Suspect]
     Indication: ADENOCARCINOMA PANCREAS
     Dosage: 218 MG, UNKNOWN
     Route: 065
     Dates: start: 20101029
  3. CAPECITABINE [Suspect]
     Indication: ADENOCARCINOMA PANCREAS
     Dosage: 1650 MG, UNKNOWN
     Route: 065
     Dates: start: 20101026
  4. CIALIS [Concomitant]
  5. HUMALOG [Concomitant]
     Indication: DIABETES MELLITUS
  6. LANTUS [Concomitant]
     Indication: DIABETES MELLITUS
  7. VICODIN [Concomitant]
  8. ANDROGEL [Concomitant]
  9. METFORMIN HCL [Concomitant]
     Indication: DIABETES MELLITUS
  10. WELLBUTRIN [Concomitant]
  11. AMBIEN [Concomitant]
  12. ASPIRIN [Concomitant]
  13. HCT [Concomitant]
  14. AMLODIPINE [Concomitant]
  15. BENAZEPRIL HYDROCHLORIDE [Concomitant]
  16. ALLOPURINOL [Concomitant]
  17. SIMVASTATIN [Concomitant]
  18. SINEMET [Concomitant]
  19. POTASSIUM CHLORIDE [Concomitant]
  20. CYCLOBENZAPRINE [Concomitant]
  21. ALBUTEROL [Concomitant]
  22. MORPHINE [Concomitant]

REACTIONS (1)
  - DEEP VEIN THROMBOSIS [None]
